FAERS Safety Report 6652271-9 (Version None)
Quarter: 2010Q1

REPORT INFORMATION
  Report Type: 
  Country: None (occurrence: None)
  Receive Date: 20100323
  Receipt Date: 20100315
  Transmission Date: 20100710
  Serious: Yes (Death, Other)
  Sender: FDA-Public Use
  Company Number: 10US001286

PATIENT
  Age: 18 Year
  Sex: Male

DRUGS (2)
  1. VALPROIC ACID [Suspect]
     Indication: COMPLEX PARTIAL SEIZURES
  2. VALPROIC ACID [Suspect]
     Indication: PARTIAL SEIZURES

REACTIONS (12)
  - ACUTE RESPIRATORY DISTRESS SYNDROME [None]
  - FOOT DEFORMITY [None]
  - GENE MUTATION [None]
  - HEPATIC FAILURE [None]
  - HEPATOTOXICITY [None]
  - NEUROPATHY PERIPHERAL [None]
  - OPHTHALMOPLEGIA [None]
  - PANCREATITIS [None]
  - PERONEAL NERVE PALSY [None]
  - RENAL FAILURE [None]
  - RESPIRATORY FAILURE [None]
  - SEPSIS [None]
